FAERS Safety Report 9130797 (Version 2)
Quarter: 2013Q1

REPORT INFORMATION
  Report Type: Report from Study
  Country: US (occurrence: US)
  Receive Date: 20130301
  Receipt Date: 20130312
  Transmission Date: 20140127
  Serious: Yes (Hospitalization)
  Sender: FDA-Public Use
  Company Number: US-JNJFOC-20130215739

PATIENT
  Sex: Male

DRUGS (2)
  1. SIMPONI [Suspect]
     Indication: RHEUMATOID ARTHRITIS
     Route: 058
  2. CHEMOTHERAPEUTICS NOS [Concomitant]
     Route: 048

REACTIONS (3)
  - Phlebitis [Unknown]
  - Infection [Unknown]
  - Thrombosis [Not Recovered/Not Resolved]
